FAERS Safety Report 7782654-5 (Version None)
Quarter: 2011Q3

REPORT INFORMATION
  Report Type: 
  Country: None (occurrence: None)
  Receive Date: 20110928
  Receipt Date: 20110926
  Transmission Date: 20111222
  Serious: Yes (Death, Hospitalization, Other)
  Sender: FDA-Public Use
  Company Number: PHHY2010AU39727

PATIENT
  Sex: Male

DRUGS (6)
  1. OLANZAPINE [Concomitant]
     Dosage: 10 MG, BID
     Route: 048
  2. VALPROATE SODIUM [Concomitant]
     Dosage: 500 MG, BID
     Route: 048
  3. HALOPERIDOL [Concomitant]
     Dosage: 1.5 MG, DAILY
     Route: 048
  4. CLOZAPINE [Suspect]
     Dosage: 200 MG, 50 MG MANE AND 150 MG NOCTE
     Dates: start: 20100603, end: 20100604
  5. CLOZAPINE [Suspect]
     Dosage: 175 MG,
     Route: 048
     Dates: start: 20100520
  6. LITHIUM SR [Concomitant]
     Dosage: 450 MG, BID
     Route: 048

REACTIONS (9)
  - TROPONIN INCREASED [None]
  - PYREXIA [None]
  - MULTI-ORGAN FAILURE [None]
  - MYOCARDITIS [None]
  - ELECTROCARDIOGRAM ABNORMAL [None]
  - TACHYCARDIA [None]
  - HYPOTENSION [None]
  - PNEUMONIA [None]
  - LUNG CONSOLIDATION [None]
